FAERS Safety Report 7749934-0 (Version None)
Quarter: 2011Q3

REPORT INFORMATION
  Report Type: 
  Country: None (occurrence: None)
  Receive Date: 20110914
  Receipt Date: 20110902
  Transmission Date: 20111222
  Serious: Yes (Other)
  Sender: FDA-Public Use
  Company Number: BR-US-EMD SERONO, INC.-7079103

PATIENT
  Sex: Male

DRUGS (5)
  1. REBIF [Suspect]
     Indication: RELAPSING-REMITTING MULTIPLE SCLEROSIS
     Dates: start: 20101005
  2. CORTICOSTEROID [Suspect]
  3. DOLAMIN FLEX [Concomitant]
  4. DOLAMIN [Concomitant]
  5. IBUPROFEN [Concomitant]

REACTIONS (1)
  - OSTEONECROSIS [None]
